FAERS Safety Report 6918928-7 (Version None)
Quarter: 2010Q3

REPORT INFORMATION
  Report Type: 
  Country: None (occurrence: None)
  Receive Date: 20100726
  Receipt Date: 20090828
  Transmission Date: 20110219
  Serious: Yes (Life-Threatening, Hospitalization)
  Sender: FDA-Public Use
  Company Number: 2009020630

PATIENT
  Sex: Female
  Weight: 77.7 kg

DRUGS (4)
  1. CARIMUNE NF [Suspect]
     Indication: MULTIPLE SCLEROSIS
     Dosage: 2 GRAMS PER KG DAILY FOR 5 DAYS INTRAVENOUS (NOT OTHERWISE SPECIFIED))
     Route: 042
     Dates: start: 20090321, end: 20090325
  2. PROVIGIL [Concomitant]
  3. BACTRIM [Concomitant]
  4. MACRODANTIN [Concomitant]

REACTIONS (4)
  - BLOOD CREATININE INCREASED [None]
  - BLOOD SODIUM DECREASED [None]
  - OLIGURIA [None]
  - RENAL FAILURE ACUTE [None]
